FAERS Safety Report 6608278-0 (Version None)
Quarter: 2010Q1

REPORT INFORMATION
  Report Type: 
  Country: None (occurrence: None)
  Receive Date: 20100301
  Receipt Date: 20100219
  Transmission Date: 20100710
  Serious: Yes (Death, Hospitalization, Other)
  Sender: FDA-Public Use
  Company Number: JP-ROCHE-686801

PATIENT
  Age: 70 Year
  Sex: Male

DRUGS (4)
  1. AVASTIN [Suspect]
     Indication: LARGE INTESTINE CARCINOMA
     Route: 041
  2. XELODA [Interacting]
     Indication: LARGE INTESTINE CARCINOMA
     Dosage: DRUG: XELODA 300
     Route: 048
  3. WARFARIN SODIUM [Interacting]
     Indication: LARGE INTESTINE CARCINOMA
     Route: 048
  4. ELPLAT [Suspect]
     Indication: LARGE INTESTINE CARCINOMA
     Route: 041

REACTIONS (5)
  - DEHYDRATION [None]
  - DRUG INTERACTION [None]
  - ENTEROCOLITIS [None]
  - INTERNATIONAL NORMALISED RATIO INCREASED [None]
  - MYOCARDIAL INFARCTION [None]
